FAERS Safety Report 25040227 (Version 1)
Quarter: 2025Q1

REPORT INFORMATION
  Report Type: Spontaneous
  Country: IT (occurrence: IT)
  Receive Date: 20250305
  Receipt Date: 20250305
  Transmission Date: 20250409
  Serious: Yes (Other)
  Sender: AUROBINDO
  Company Number: IT-SPECTRUM PHARMACEUTICALS, INC.-14-Z-IT-00363

PATIENT

DRUGS (1)
  1. ZEVALIN [Suspect]
     Active Substance: IBRITUMOMAB TIUXETAN
     Indication: Non-Hodgkin^s lymphoma
     Route: 042

REACTIONS (1)
  - Myelodysplastic syndrome [Unknown]
